FAERS Safety Report 19754895 (Version 1)
Quarter: 2021Q3

REPORT INFORMATION
  Report Type: Spontaneous
  Country: US (occurrence: US)
  Receive Date: 20210827
  Receipt Date: 20210827
  Transmission Date: 20211014
  Serious: No
  Sender: FDA-Public Use
  Company Number: US-ENDO PHARMACEUTICALS INC-2021-010359

PATIENT
  Sex: Female

DRUGS (4)
  1. DELESTROGEN [Suspect]
     Active Substance: ESTRADIOL VALERATE
     Dosage: 0.4 ML, ONCE A WEEK
     Route: 030
     Dates: start: 202104, end: 202105
  2. DELESTROGEN [Suspect]
     Active Substance: ESTRADIOL VALERATE
     Dosage: 0.4 ML, ONCE A WEEK
     Route: 030
     Dates: start: 202103, end: 2021
  3. DELESTROGEN [Suspect]
     Active Substance: ESTRADIOL VALERATE
     Indication: ARTIFICIAL MENOPAUSE
     Dosage: 0.4 ML, ONCE A WEEK
     Route: 030
     Dates: start: 202101, end: 2021
  4. DELESTROGEN [Suspect]
     Active Substance: ESTRADIOL VALERATE
     Dosage: 0.4 ML, ONCE A WEEK
     Route: 030
     Dates: start: 20210528

REACTIONS (7)
  - Wrong technique in product usage process [Unknown]
  - Anxiety [Recovering/Resolving]
  - Blood oestrogen decreased [Unknown]
  - Therapeutic product effect decreased [Recovering/Resolving]
  - Off label use [Unknown]
  - Panic attack [Recovering/Resolving]
  - Product leakage [Recovered/Resolved]

NARRATIVE: CASE EVENT DATE: 2021
